FAERS Safety Report 24082055 (Version 1)
Quarter: 2024Q3

REPORT INFORMATION
  Report Type: Spontaneous
  Country: US (occurrence: US)
  Receive Date: 20240712
  Receipt Date: 20240712
  Transmission Date: 20241016
  Serious: No
  Sender: ROCHE
  Company Number: US-ROCHE-10000022004

PATIENT

DRUGS (1)
  1. ENTRECTINIB [Suspect]
     Active Substance: ENTRECTINIB
     Indication: Cervix cancer metastatic
     Route: 065

REACTIONS (3)
  - Off label use [Unknown]
  - Ageusia [Unknown]
  - Impaired driving ability [Unknown]
